FAERS Safety Report 18330340 (Version 1)
Quarter: 2020Q3

REPORT INFORMATION
  Report Type: Spontaneous
  Country: US (occurrence: US)
  Receive Date: 20200930
  Receipt Date: 20200930
  Transmission Date: 20201103
  Serious: No
  Sender: FDA-Public Use
  Company Number: US-BAYER-2020-189066

PATIENT
  Age: 51 Year
  Sex: Female

DRUGS (1)
  1. CLIMARA PRO [Suspect]
     Active Substance: ESTRADIOL\LEVONORGESTREL
     Indication: OESTROGEN DEFICIENCY
     Dosage: UNK
     Route: 062
     Dates: start: 20200828, end: 2020

REACTIONS (5)
  - Multiple use of single-use product [None]
  - Night sweats [Not Recovered/Not Resolved]
  - Migraine [None]
  - Product adhesion issue [None]
  - Wrong technique in product usage process [None]

NARRATIVE: CASE EVENT DATE: 2020
